FAERS Safety Report 8406856-X (Version None)
Quarter: 2012Q2

REPORT INFORMATION
  Report Type: 
  Country: None (occurrence: None)
  Receive Date: 20120604
  Receipt Date: 20120530
  Transmission Date: 20120825
  Serious: Yes (Other)
  Sender: FDA-Public Use
  Company Number: VE-PFIZER INC-2012132032

PATIENT
  Sex: Male

DRUGS (2)
  1. NORVASC [Concomitant]
     Dosage: UNK
  2. LIPITOR [Suspect]
     Dosage: 40 MG, UNK

REACTIONS (1)
  - CEREBROVASCULAR ACCIDENT [None]
